FAERS Safety Report 10787335 (Version 1)
Quarter: 2020Q3

REPORT INFORMATION
  Report Type: Spontaneous
  Country: GB (occurrence: GB)
  Receive Date: 20150211
  Receipt Date: 20150211
  Transmission Date: 20201105
  Serious: Yes (Hospitalization, Disabling)
  Sender: FDA-Public Use
  Company Number: GB-ROCHE-1534190

PATIENT
  Age: 66 Year
  Sex: Female
  Weight: 75 kg

DRUGS (5)
  1. ESTRADIOL. [Concomitant]
     Active Substance: ESTRADIOL
     Route: 065
  2. LOSARTAN. [Concomitant]
     Active Substance: LOSARTAN
     Route: 065
  3. RANITIDINE. [Concomitant]
     Active Substance: RANITIDINE
     Route: 065
  4. IBANDRONIC ACID. [Suspect]
     Active Substance: IBANDRONIC ACID
     Indication: OSTEOPOROSIS
     Route: 048
     Dates: start: 2008, end: 20141203
  5. ADCAL?D3 [Concomitant]
     Active Substance: CALCIUM CARBONATE\CHOLECALCIFEROL
     Route: 065

REACTIONS (1)
  - Pathological fracture [Recovering/Resolving]

NARRATIVE: CASE EVENT DATE: 20141203
